FAERS Safety Report 10496404 (Version 1)
Quarter: 2014Q4

REPORT INFORMATION
  Report Type: Report from Study
  Country: VE (occurrence: VE)
  Receive Date: 20141003
  Receipt Date: 20141003
  Transmission Date: 20150528
  Serious: Yes (Other)
  Sender: FDA-Public Use
  Company Number: VE-ABBVIE-14K-178-1289834-00

PATIENT
  Age: 32 Year
  Sex: Female
  Weight: 82 kg

DRUGS (1)
  1. HUMIRA [Suspect]
     Active Substance: ADALIMUMAB
     Indication: PSORIASIS
     Route: 058
     Dates: start: 201405, end: 20140827

REACTIONS (1)
  - Nasal turbinate abnormality [Recovering/Resolving]

NARRATIVE: CASE EVENT DATE: 20140903
